FAERS Safety Report 13384712 (Version 1)
Quarter: 2017Q1

REPORT INFORMATION
  Report Type: Spontaneous
  Country: US (occurrence: US)
  Receive Date: 20170329
  Receipt Date: 20170329
  Transmission Date: 20170429
  Serious: Yes (Other)
  Sender: FDA-Public Use
  Company Number: None

PATIENT
  Age: 35 Year
  Sex: Male
  Weight: 83.25 kg

DRUGS (6)
  1. ZYRTEC [Concomitant]
     Active Substance: CETIRIZINE HYDROCHLORIDE
  2. VIVITROL [Suspect]
     Active Substance: NALTREXONE
     Indication: DRUG DEPENDENCE
     Dosage: ?          QUANTITY:1 INJECTION(S);OTHER FREQUENCY:MONTHLY;?
     Route: 058
     Dates: start: 20170202, end: 20170224
  3. VIVITROL [Suspect]
     Active Substance: NALTREXONE
     Indication: PROPHYLAXIS
     Dosage: ?          QUANTITY:1 INJECTION(S);OTHER FREQUENCY:MONTHLY;?
     Route: 058
     Dates: start: 20170202, end: 20170224
  4. IMITREX [Concomitant]
     Active Substance: SUMATRIPTAN SUCCINATE
  5. ALEVE [Concomitant]
     Active Substance: NAPROXEN SODIUM
  6. DYMISTA [Concomitant]
     Active Substance: AZELASTINE HYDROCHLORIDE\FLUTICASONE PROPIONATE

REACTIONS (11)
  - Pruritus [None]
  - Depression [None]
  - Fatigue [None]
  - Insomnia [None]
  - Skin ulcer [None]
  - Pain [None]
  - Irritability [None]
  - Lip swelling [None]
  - Ear pain [None]
  - Tinnitus [None]
  - Suicidal ideation [None]

NARRATIVE: CASE EVENT DATE: 20170227
